FAERS Safety Report 25192417 (Version 2)
Quarter: 2025Q2

REPORT INFORMATION
  Report Type: Report from Study
  Country: AT (occurrence: AT)
  Receive Date: 20250414
  Receipt Date: 20250414
  Transmission Date: 20250716
  Serious: Yes (Other)
  Sender: PHARMAESSENTIA
  Company Number: AT-01-007

PATIENT
  Age: 68 Year
  Sex: Male

DRUGS (6)
  1. BESREMI [Suspect]
     Active Substance: ROPEGINTERFERON ALFA-2B-NJFT
     Indication: Polycythaemia vera
     Dosage: 125 MICROGRAM, Q2W
     Route: 058
     Dates: start: 20210310, end: 20220318
  2. BESREMI [Suspect]
     Active Substance: ROPEGINTERFERON ALFA-2B-NJFT
     Dosage: 125 MICROGRAM, EVERY 3 WEEKS, REASON FOR CHANGE: BAD TOLERABILITY OF BESREMI. SINCE 21-JUN-2022, BES
     Route: 058
     Dates: start: 20220518, end: 20220721
  3. EDOXABAN TOSYLATE [Concomitant]
     Active Substance: EDOXABAN TOSYLATE
     Indication: Polycythaemia vera
     Route: 048
     Dates: start: 20211109, end: 20220518
  4. RUXOLITINIB [Concomitant]
     Active Substance: RUXOLITINIB
     Indication: Polycythaemia vera
     Route: 048
     Dates: start: 20220518
  5. COLCHICINE [Concomitant]
     Active Substance: COLCHICINE
     Indication: Blood calcium
     Route: 048
     Dates: start: 20220518
  6. COLCHICINE [Concomitant]
     Active Substance: COLCHICINE
     Indication: Prophylaxis

REACTIONS (2)
  - Myelofibrosis [Not Recovered/Not Resolved]
  - Off label use [Not Recovered/Not Resolved]

NARRATIVE: CASE EVENT DATE: 20220314
